FAERS Safety Report 16362226 (Version 2)
Quarter: 2019Q2

REPORT INFORMATION
  Report Type: Spontaneous
  Country: TR (occurrence: TR)
  Receive Date: 20190528
  Receipt Date: 20190604
  Transmission Date: 20190711
  Serious: Yes (Hospitalization, Other)
  Sender: FDA-Public Use
  Company Number: TR-HERITAGE PHARMACEUTICALS-2019HTG00224

PATIENT
  Age: 73 Year
  Sex: Female

DRUGS (1)
  1. METHIMAZOLE. [Suspect]
     Active Substance: METHIMAZOLE
     Indication: HYPERTHYROIDISM
     Dosage: 3 X 5 MG/DAY
     Route: 065

REACTIONS (5)
  - Paronychia [Recovered/Resolved]
  - Necrosis ischaemic [Recovered/Resolved]
  - Cellulitis [Recovered/Resolved]
  - Agranulocytosis [Recovered/Resolved]
  - Febrile neutropenia [Recovered/Resolved]
